FAERS Safety Report 8236616-4 (Version None)
Quarter: 2012Q1

REPORT INFORMATION
  Report Type: 
  Country: None (occurrence: None)
  Receive Date: 20120327
  Receipt Date: 20120319
  Transmission Date: 20120608
  Serious: Yes (Hospitalization, Other)
  Sender: FDA-Public Use
  Company Number: US-BAYER-2011-107124

PATIENT
  Age: 16 Year
  Sex: Female
  Weight: 57.596 kg

DRUGS (6)
  1. SEASONIQUE [Concomitant]
     Indication: CONTRACEPTION
     Route: 048
  2. YAZ [Suspect]
     Indication: PREMENSTRUAL SYNDROME
     Dosage: UNK
     Dates: start: 20080101, end: 20090101
  3. IBUPROFEN [Concomitant]
     Dosage: 200 MG, PRN
     Route: 048
  4. YAZ [Suspect]
  5. KAPIDEX [Concomitant]
     Indication: GASTROOESOPHAGEAL REFLUX DISEASE
     Dosage: 300 MG, UNK
     Route: 048
  6. YAZ [Suspect]
     Indication: ACNE
     Dosage: UNK
     Dates: start: 20050101, end: 20090101

REACTIONS (4)
  - GALLBLADDER DISORDER [None]
  - PAIN [None]
  - INJURY [None]
  - BILIARY DYSKINESIA [None]
